FAERS Safety Report 5536423-7 (Version None)
Quarter: 2008Q1

REPORT INFORMATION
  Report Type: 
  Country: None (occurrence: None)
  Receive Date: 20071204
  Receipt Date: 20071122
  Transmission Date: 20080703
  Serious: Yes (Hospitalization)
  Sender: FDA-Public Use
  Company Number: 2007SP023826

PATIENT
  Sex: Female
  Weight: 84 kg

DRUGS (4)
  1. PEG-INTRON [Suspect]
     Indication: HEPATITIS C
     Dosage: 1.5 MCG/KG;QW;SC
     Route: 058
     Dates: start: 20071017
  2. BLINDED SCH 900518 [Suspect]
     Indication: HEPATITIS C
     Dosage: 800 MG;TID;PO; 800 MG;TID;PO
     Route: 048
     Dates: start: 20070912, end: 20070918
  3. BLINDED SCH 900518 [Suspect]
     Indication: HEPATITIS C
     Dosage: 800 MG;TID;PO; 800 MG;TID;PO
     Route: 048
     Dates: start: 20070917, end: 20071030
  4. RIBAVIRIN [Concomitant]

REACTIONS (4)
  - ASTHENIA [None]
  - C-REACTIVE PROTEIN INCREASED [None]
  - MALAISE [None]
  - PYREXIA [None]
